FAERS Safety Report 20644742 (Version 1)
Quarter: 2022Q1

REPORT INFORMATION
  Report Type: Report from Study
  Country: CA (occurrence: CA)
  Receive Date: 20220328
  Receipt Date: 20220328
  Transmission Date: 20220423
  Serious: Yes (Other)
  Sender: FDA-Public Use
  Company Number: CA-BAUSCH-BL-2022-007512

PATIENT
  Age: 82 Year
  Sex: Male
  Weight: 83 kg

DRUGS (3)
  1. EFUDEX [Suspect]
     Active Substance: FLUOROURACIL
     Indication: Skin cancer
     Route: 065
  2. REMICADE [Suspect]
     Active Substance: INFLIXIMAB
     Indication: Rheumatoid arthritis
     Route: 042
  3. METHOTREXATE [Concomitant]
     Active Substance: METHOTREXATE
     Indication: Rheumatoid arthritis
     Route: 048

REACTIONS (3)
  - Skin cancer [Unknown]
  - Rash erythematous [Unknown]
  - Pruritus [Unknown]
